FAERS Safety Report 11895396 (Version 2)
Quarter: 2016Q1

REPORT INFORMATION
  Report Type: Report from Study
  Country: CA (occurrence: CA)
  Receive Date: 20160107
  Receipt Date: 20160323
  Transmission Date: 20160526
  Serious: Yes (Other)
  Sender: FDA-Public Use
  Company Number: CA-JNJFOC-20160101886

PATIENT
  Age: 65 Year
  Sex: Female
  Weight: 82 kg

DRUGS (21)
  1. ATIVAN [Concomitant]
     Active Substance: LORAZEPAM
     Dosage: PLACED UNDER THE TONGUE AT BEDTIME WHEN REQUIRED.
     Route: 060
     Dates: start: 20141021
  2. BETADERMA [Concomitant]
     Indication: RASH
     Dosage: APPLY TO RASH TWICE DAILY WHEN REQUIRED
     Route: 065
     Dates: start: 20150603
  3. HYDROCORTISONE. [Concomitant]
     Active Substance: HYDROCORTISONE
     Indication: PREMEDICATION
     Route: 065
  4. AERIUS [Concomitant]
     Active Substance: DESLORATADINE
     Indication: PREMEDICATION
     Route: 065
  5. NIFEDIPINE. [Concomitant]
     Active Substance: NIFEDIPINE
     Dosage: FREQUENCY: 1 TO 2 TABLETS DAILY, MYLAN, ADALALAT
     Route: 065
     Dates: start: 20151002
  6. GRAVOL [Concomitant]
     Active Substance: DIMENHYDRINATE
     Indication: PREMEDICATION
     Route: 065
  7. VITAMIN D [Concomitant]
     Active Substance: CHOLECALCIFEROL
     Dosage: 1000 UNITS, PMS
     Route: 065
     Dates: start: 20150314
  8. MAR DOMPERIDONE [Concomitant]
     Dosage: BEFORE MEAL WHEN REQUIRED
     Route: 065
     Dates: start: 20151025
  9. BENADRYL [Concomitant]
     Active Substance: DIPHENHYDRAMINE HYDROCHLORIDE
     Indication: PREMEDICATION
     Route: 065
  10. CYMBALTA [Concomitant]
     Active Substance: DULOXETINE HYDROCHLORIDE
     Route: 065
     Dates: start: 20151215
  11. SOLIFENACIN [Concomitant]
     Active Substance: SOLIFENACIN
     Dosage: TEVA
     Route: 065
     Dates: start: 20151212
  12. ENABLEX [Concomitant]
     Active Substance: DARIFENACIN HYDROBROMIDE
     Dosage: SR 2
     Route: 065
     Dates: start: 20150114
  13. REMICADE [Suspect]
     Active Substance: INFLIXIMAB
     Indication: CROHN^S DISEASE
     Route: 042
     Dates: start: 20101026
  14. TYLENOL [Concomitant]
     Active Substance: ACETAMINOPHEN
     Indication: PREMEDICATION
     Route: 065
  15. FLUVIRAL [Concomitant]
     Active Substance: INFLUENZA VIRUS VACCINE
     Dosage: 45 MCG VIAL, VACCINATED BY A DAWSON
     Route: 065
     Dates: start: 20151215
  16. APO HYDRO [Concomitant]
     Route: 065
     Dates: start: 20151002
  17. AGRIFLU [Concomitant]
     Active Substance: INFLUENZA VIRUS VACCINE
     Dosage: 45MCG, DISP SYR
     Route: 065
     Dates: start: 20141031
  18. MAR ATENOLOL [Concomitant]
     Dosage: ON HOLD
     Route: 065
     Dates: start: 20151215
  19. TELMISARTAN. [Concomitant]
     Active Substance: TELMISARTAN
     Dosage: SDZ, MYPBETRIO
     Route: 065
     Dates: start: 20151005
  20. APO OMEPRAZOLE [Concomitant]
     Dosage: BEFORE MEAL
     Route: 065
     Dates: start: 20151002
  21. MYRBETRIQ [Concomitant]
     Active Substance: MIRABEGRON
     Dosage: ON HOLD
     Route: 065
     Dates: start: 20150609

REACTIONS (1)
  - Intraductal proliferative breast lesion [Unknown]

NARRATIVE: CASE EVENT DATE: 201512
